FAERS Safety Report 8218874-5 (Version None)
Quarter: 2012Q1

REPORT INFORMATION
  Report Type: 
  Country: None (occurrence: None)
  Receive Date: 20120319
  Receipt Date: 20120313
  Transmission Date: 20120608
  Serious: Yes (Life-Threatening, Hospitalization, Other)
  Sender: FDA-Public Use
  Company Number: 2012SP000824

PATIENT
  Age: 17 Year
  Sex: Female

DRUGS (9)
  1. PROZAC [Concomitant]
     Indication: DEPRESSION
  2. PRILOSEC [Concomitant]
     Indication: GASTROINTESTINAL DISORDER
  3. LATUDA [Suspect]
     Route: 048
     Dates: start: 20120301, end: 20120301
  4. CARAFATE [Concomitant]
     Indication: GASTROINTESTINAL DISORDER
  5. YAZ /06531601/ [Concomitant]
     Indication: PREMENSTRUAL SYNDROME
  6. LATUDA [Suspect]
     Route: 048
     Dates: start: 20120301, end: 20120308
  7. TRAZODONE HCL [Concomitant]
     Indication: PRODUCT USED FOR UNKNOWN INDICATION
  8. LATUDA [Suspect]
     Indication: BIPOLAR DISORDER
     Route: 048
     Dates: start: 20110501, end: 20120305
  9. PROZAC [Concomitant]
     Indication: BIPOLAR DISORDER

REACTIONS (15)
  - DYSPNOEA [None]
  - TREMOR [None]
  - SPINAL COLUMN INJURY [None]
  - ABNORMAL BEHAVIOUR [None]
  - DEPRESSION [None]
  - ANXIETY [None]
  - SELF INJURIOUS BEHAVIOUR [None]
  - ABNORMAL DREAMS [None]
  - LIGAMENT INJURY [None]
  - RECTAL HAEMORRHAGE [None]
  - FLAT AFFECT [None]
  - THERMAL BURN [None]
  - SUICIDE ATTEMPT [None]
  - ANKLE FRACTURE [None]
  - MOOD SWINGS [None]
